FAERS Safety Report 17980493 (Version 1)
Quarter: 2020Q3

REPORT INFORMATION
  Report Type: Spontaneous
  Country: US (occurrence: US)
  Receive Date: 20200704
  Receipt Date: 20200704
  Transmission Date: 20201103
  Serious: Yes (Hospitalization, Other)
  Sender: FDA-Public Use
  Company Number: US-ALEXION PHARMACEUTICALS INC.-A202009197

PATIENT
  Sex: Female

DRUGS (3)
  1. IMURAN [Concomitant]
     Active Substance: AZATHIOPRINE
     Indication: PRODUCT USED FOR UNKNOWN INDICATION
     Route: 065
  2. SOLIRIS [Suspect]
     Active Substance: ECULIZUMAB
     Indication: MYASTHENIA GRAVIS
     Dosage: 1200 MG, EVERY 2 WEEKS
     Route: 042
     Dates: start: 201911
  3. IVIGLOB EX [Concomitant]
     Active Substance: HUMAN IMMUNOGLOBULIN G
     Indication: PRODUCT USED FOR UNKNOWN INDICATION
     Route: 042

REACTIONS (16)
  - Post procedural infection [Unknown]
  - Impaired healing [Unknown]
  - Dysstasia [Unknown]
  - Dysphonia [Unknown]
  - Pyrexia [Unknown]
  - Nasopharyngitis [Unknown]
  - Pustule [Unknown]
  - Asthenia [Unknown]
  - Influenza [Unknown]
  - Immune system disorder [Unknown]
  - Increased appetite [Unknown]
  - Chills [Unknown]
  - Choking [Unknown]
  - Weight increased [Unknown]
  - Illness [Unknown]
  - Dyspnoea [Unknown]

NARRATIVE: CASE EVENT DATE: 202003
